FAERS Safety Report 25034386 (Version 2)
Quarter: 2025Q1

REPORT INFORMATION
  Report Type: Spontaneous
  Country: US (occurrence: US)
  Receive Date: 20250304
  Receipt Date: 20250325
  Transmission Date: 20250408
  Serious: No
  Sender: ROCHE
  Company Number: US-ROCHE-10000220047

PATIENT
  Sex: Female

DRUGS (2)
  1. XOLAIR PFS [Suspect]
     Active Substance: OMALIZUMAB
     Indication: Idiopathic urticaria
     Dosage: STRENGTH: 300 MG/2ML
     Route: 058
     Dates: start: 202407
  2. XOLAIR PFS [Suspect]
     Active Substance: OMALIZUMAB
     Indication: Osteoarthritis

REACTIONS (2)
  - Arthralgia [Unknown]
  - Pain in extremity [Unknown]
